FAERS Safety Report 7282187-9 (Version None)
Quarter: 2011Q1

REPORT INFORMATION
  Report Type: 
  Country: None (occurrence: None)
  Receive Date: 20110209
  Receipt Date: 20110131
  Transmission Date: 20110831
  Serious: Yes (Hospitalization)
  Sender: FDA-Public Use
  Company Number: US-BIOGENIDEC-2011BI001225

PATIENT
  Age: 54 Year
  Sex: Female

DRUGS (1)
  1. TYSABRI [Suspect]
     Indication: MULTIPLE SCLEROSIS
     Route: 042
     Dates: start: 20100930, end: 20101027

REACTIONS (5)
  - PERSONALITY DISORDER [None]
  - MAJOR DEPRESSION [None]
  - NEPHROLITHIASIS [None]
  - MULTIPLE SCLEROSIS [None]
  - PULMONARY GRANULOMA [None]
